FAERS Safety Report 6547300-7 (Version None)
Quarter: 2010Q1

REPORT INFORMATION
  Report Type: 
  Country: None (occurrence: None)
  Receive Date: 20100122
  Receipt Date: 20100115
  Transmission Date: 20100710
  Serious: No
  Sender: FDA-Public Use
  Company Number: US-B.I. PHARMACEUTICALS,INC./RIDGEFIELD-2010-BP-00544BP

PATIENT
  Sex: Male

DRUGS (1)
  1. ZANTAC 75 [Suspect]
     Dosage: 150 MG
     Route: 048
     Dates: start: 20020101

REACTIONS (5)
  - CARDIOMYOPATHY [None]
  - HEPATIC ENZYME INCREASED [None]
  - HYPERTENSION [None]
  - PAIN [None]
  - ROAD TRAFFIC ACCIDENT [None]
